FAERS Safety Report 6334365-0 (Version None)
Quarter: 2009Q3

REPORT INFORMATION
  Report Type: 
  Country: None (occurrence: None)
  Receive Date: 20090831
  Receipt Date: 20070810
  Transmission Date: 20100115
  Serious: Yes (Hospitalization, Other)
  Sender: FDA-Public Use
  Company Number: US-ASTRAZENECA-2007UW02055

PATIENT
  Age: 14368 Day
  Sex: Female
  Weight: 131.5 kg

DRUGS (19)
  1. SEROQUEL [Suspect]
     Indication: POST-TRAUMATIC STRESS DISORDER
     Dosage: 100 MG TO 300 MG
     Route: 048
     Dates: start: 19980701, end: 20060201
  2. SEROQUEL [Suspect]
     Indication: SLEEP DISORDER
     Dosage: 100 MG TO 300 MG
     Route: 048
     Dates: start: 19980701, end: 20060201
  3. SEROQUEL [Suspect]
     Dosage: 25 MG TWO TABLETS AT NIGHT
     Route: 048
     Dates: start: 19980909
  4. SEROQUEL [Suspect]
     Dosage: 25 MG TWO TABLETS AT NIGHT
     Route: 048
     Dates: start: 19980909
  5. SEROQUEL [Suspect]
     Dosage: 150 MG IN THE MORNING AND 900 MG AT NIGHT
     Route: 048
     Dates: start: 20050623
  6. SEROQUEL [Suspect]
     Dosage: 150 MG IN THE MORNING AND 900 MG AT NIGHT
     Route: 048
     Dates: start: 20050623
  7. SEROQUEL [Suspect]
     Route: 048
     Dates: start: 20070614
  8. SEROQUEL [Suspect]
     Route: 048
     Dates: start: 20070614
  9. COREG [Concomitant]
     Dosage: 6.25 MG - 37.5 MG
     Route: 048
     Dates: start: 20030314
  10. GLYBURIDE [Concomitant]
     Dosage: 10 MG - 20 MG
     Route: 048
     Dates: start: 20050623
  11. PREVACID [Concomitant]
     Dosage: 15 MG - 30 MG
     Dates: start: 20030217
  12. DIOVAN [Concomitant]
     Dosage: 160 MG - 240 MG
     Route: 048
     Dates: start: 20030217
  13. HYDROCHLOROTHIAZIDE [Concomitant]
     Dosage: 12.5 MG - 25 MG
     Route: 048
     Dates: start: 20050623
  14. CLONIDINE [Concomitant]
     Dosage: 0.1 MG - 0.4 MG
     Route: 048
     Dates: start: 20030217
  15. ZOLOFT [Concomitant]
     Indication: DEPRESSION
     Route: 048
     Dates: start: 20030217
  16. EFFEXOR [Concomitant]
     Dosage: 50 MG - 300 MG
     Dates: start: 19970616
  17. ELAVIL [Concomitant]
     Indication: IRRITABLE BOWEL SYNDROME
     Dosage: 50 MG - 100 MG
     Route: 048
     Dates: start: 19980709
  18. METFORMIN HCL [Concomitant]
     Dates: start: 20060324
  19. PULMICORT-100 [Concomitant]
     Dosage: TWO PUFFS TWO TO THREE TIMES A DAY
     Dates: start: 20030217

REACTIONS (31)
  - ANXIETY [None]
  - ARTHROSCOPY [None]
  - ATRIOVENTRICULAR BLOCK [None]
  - BLOOD CHOLESTEROL INCREASED [None]
  - BONE INFARCTION [None]
  - CARDIAC DISORDER [None]
  - CARDIAC FAILURE [None]
  - CARDIAC FAILURE CONGESTIVE [None]
  - CARDIOMEGALY [None]
  - CHONDROPLASTY [None]
  - DIABETES MELLITUS [None]
  - DIABETES MELLITUS INADEQUATE CONTROL [None]
  - ECZEMA [None]
  - EJECTION FRACTION DECREASED [None]
  - ELECTROCARDIOGRAM T WAVE ABNORMAL [None]
  - EXOSTOSIS [None]
  - HAEMORRHOIDS [None]
  - HYPERTENSION [None]
  - HYPERTENSIVE CARDIOMYOPATHY [None]
  - HYPERTENSIVE HEART DISEASE [None]
  - JOINT EFFUSION [None]
  - KNEE OPERATION [None]
  - LEFT VENTRICULAR FAILURE [None]
  - LOBAR PNEUMONIA [None]
  - OSTEOARTHRITIS [None]
  - OSTEONECROSIS [None]
  - PULMONARY HYPERTENSION [None]
  - SKIN DISORDER [None]
  - TREATMENT FAILURE [None]
  - TYPE 2 DIABETES MELLITUS [None]
  - WEIGHT INCREASED [None]
